FAERS Safety Report 17997844 (Version 2)
Quarter: 2020Q3

REPORT INFORMATION
  Report Type: Report from Study
  Country: FR (occurrence: FR)
  Receive Date: 20200708
  Receipt Date: 20200715
  Transmission Date: 20201103
  Serious: Yes (Death)
  Sender: FDA-Public Use
  Company Number: FR-TAKEDA-2020TUS029493

PATIENT
  Age: 69 Year
  Sex: Female

DRUGS (2)
  1. REVLIMID [Suspect]
     Active Substance: LENALIDOMIDE
     Indication: PLASMA CELL MYELOMA
     Dosage: 25 MILLIGRAM
     Route: 065
     Dates: end: 20180203
  2. IXAZOMIB [Suspect]
     Active Substance: IXAZOMIB
     Indication: PLASMA CELL MYELOMA
     Dosage: 4 MILLIGRAM, 1/WEEK
     Route: 065
     Dates: end: 20180203

REACTIONS (2)
  - Off label use [Unknown]
  - Erysipelas [Fatal]

NARRATIVE: CASE EVENT DATE: 20180311
